FAERS Safety Report 8489028-2 (Version None)
Quarter: 2012Q3

REPORT INFORMATION
  Report Type: 
  Country: None (occurrence: None)
  Receive Date: 20120705
  Receipt Date: 20120629
  Transmission Date: 20120928
  Serious: Yes (Hospitalization, Disabling, Other)
  Sender: FDA-Public Use
  Company Number: US-PFIZER INC-2012063477

PATIENT
  Sex: Female

DRUGS (1)
  1. CHANTIX [Suspect]
     Indication: SMOKING CESSATION THERAPY
     Dosage: UNK
     Dates: start: 20090220, end: 20090307

REACTIONS (8)
  - LOSS OF CONSCIOUSNESS [None]
  - PHYSICAL DISABILITY [None]
  - ANXIETY [None]
  - LIMB OPERATION [None]
  - DEPRESSION [None]
  - AMNESIA [None]
  - SLEEP TERROR [None]
  - SLEEP DISORDER [None]
